FAERS Safety Report 7228989-6 (Version None)
Quarter: 2011Q1

REPORT INFORMATION
  Report Type: 
  Country: None (occurrence: None)
  Receive Date: 20110117
  Receipt Date: 20110111
  Transmission Date: 20110831
  Serious: Yes (Other)
  Sender: FDA-Public Use
  Company Number: IL-JNJFOC-20100603790

PATIENT
  Age: 31 Year
  Sex: Male

DRUGS (3)
  1. ZYPREXA [Concomitant]
     Route: 065
  2. CIPRAMIL [Concomitant]
     Route: 065
  3. TOPAMAX [Suspect]
     Indication: DRUG THERAPY
     Route: 048

REACTIONS (1)
  - THROMBOPHLEBITIS SUPERFICIAL [None]
